FAERS Safety Report 25386454 (Version 1)
Quarter: 2025Q2

REPORT INFORMATION
  Report Type: Spontaneous
  Country: US (occurrence: None)
  Receive Date: 20250602
  Receipt Date: 20250602
  Transmission Date: 20250716
  Serious: Yes (unspecified)
  Sender: FDA-CTU
  Company Number: None

PATIENT
  Age: 72 Year
  Sex: Female

DRUGS (1)
  1. VENCLEXTA [Suspect]
     Active Substance: VENETOCLAX
     Indication: Chronic lymphocytic leukaemia
     Dosage: FREQUENCY : DAILY;?
     Route: 048

REACTIONS (11)
  - Chest pain [None]
  - Muscle spasms [None]
  - Fall [None]
  - Head injury [None]
  - Fatigue [None]
  - Hypophagia [None]
  - Dehydration [None]
  - Taste disorder [None]
  - Alopecia [None]
  - Acute kidney injury [None]
  - COVID-19 [None]
